FAERS Safety Report 7357644-7 (Version None)
Quarter: 2011Q1

REPORT INFORMATION
  Report Type: 
  Country: None (occurrence: None)
  Receive Date: 20110317
  Receipt Date: 20110309
  Transmission Date: 20110831
  Serious: Yes (Hospitalization)
  Sender: FDA-Public Use
  Company Number: US-ELI_LILLY_AND_COMPANY-US201103003529

PATIENT
  Sex: Female

DRUGS (15)
  1. BOTOX [Concomitant]
  2. ESTRADIOL [Concomitant]
  3. VITAMIN D [Concomitant]
  4. ASPIRIN [Concomitant]
  5. NORCO [Concomitant]
  6. NEXIUM [Concomitant]
  7. LIPITOR [Concomitant]
  8. TRICOR [Concomitant]
  9. EFFEXOR XR [Concomitant]
  10. BACLOFEN [Concomitant]
     Indication: MUSCLE SPASMS
  11. SPIRIVA [Concomitant]
  12. RESTASIS [Concomitant]
  13. NEURONTIN [Concomitant]
  14. CALCIUM [Concomitant]
  15. FORTEO [Suspect]
     Indication: MULTIPLE FRACTURES
     Dosage: 20 UG, DAILY (1/D)
     Dates: start: 20101201

REACTIONS (5)
  - NAUSEA [None]
  - MUSCLE SPASMS [None]
  - INTENTIONAL DRUG MISUSE [None]
  - FRACTURE DELAYED UNION [None]
  - BLOOD POTASSIUM INCREASED [None]
